FAERS Safety Report 7378719-2 (Version None)
Quarter: 2011Q1

REPORT INFORMATION
  Report Type: 
  Country: None (occurrence: None)
  Receive Date: 20110328
  Receipt Date: 20110322
  Transmission Date: 20110831
  Serious: Yes (Life-Threatening)
  Sender: FDA-Public Use
  Company Number: FR-B.I. PHARMACEUTICALS,INC./RIDGEFIELD-2011-FF-00285FF

PATIENT
  Sex: Male
  Weight: 130 kg

DRUGS (6)
  1. PRADAXA [Suspect]
     Indication: KNEE ARTHROPLASTY
     Dosage: 220 MG
     Route: 048
     Dates: start: 20110302, end: 20110305
  2. EUPRESSYL [Concomitant]
     Route: 048
  3. ALLOPURINOL [Concomitant]
     Dosage: 200 MG
     Route: 048
  4. PROFENID [Suspect]
     Indication: ARTHRALGIA
     Dosage: 50 MG
     Route: 048
     Dates: start: 20110301, end: 20110305
  5. EXFORGE [Concomitant]
     Route: 048
  6. RASILEZ [Concomitant]
     Dosage: 150 MG
     Route: 048

REACTIONS (5)
  - HAEMATEMESIS [None]
  - HYPOPROTHROMBINAEMIA [None]
  - MELAENA [None]
  - HAEMOGLOBIN DECREASED [None]
  - RECTAL HAEMORRHAGE [None]
